FAERS Safety Report 5731630-2 (Version None)
Quarter: 2008Q2

REPORT INFORMATION
  Report Type: 
  Country: None (occurrence: None)
  Receive Date: 20080506
  Receipt Date: 20080421
  Transmission Date: 20081010
  Serious: Yes (Hospitalization)
  Sender: FDA-Public Use
  Company Number: 2008US001156

PATIENT
  Age: 50 Year
  Sex: Female
  Weight: 99.8 kg

DRUGS (2)
  1. AMEVIVE [Suspect]
     Indication: PSORIASIS
     Dosage: 15 MG, WEEKLY, INTRAMUSCULAR
     Route: 030
     Dates: start: 20041111
  2. METOPROLOL TARTRATE [Concomitant]

REACTIONS (9)
  - ANGINA PECTORIS [None]
  - CHEST PAIN [None]
  - CORONARY ARTERY ANEURYSM [None]
  - CORONARY ARTERY DILATATION [None]
  - CORONARY ARTERY DISEASE [None]
  - CORONARY ARTERY STENOSIS [None]
  - DIZZINESS [None]
  - EJECTION FRACTION DECREASED [None]
  - PALPITATIONS [None]
